FAERS Safety Report 18751543 (Version 1)
Quarter: 2021Q1

REPORT INFORMATION
  Report Type: Report from Study
  Country: US (occurrence: US)
  Receive Date: 20210118
  Receipt Date: 20210118
  Transmission Date: 20210419
  Serious: Yes (Other)
  Sender: FDA-Public Use
  Company Number: NVSC2021US004126

PATIENT
  Sex: Male

DRUGS (6)
  1. TASIGNA [Suspect]
     Active Substance: NILOTINIB
     Dosage: 300 MG, BID
     Route: 065
  2. TASIGNA [Suspect]
     Active Substance: NILOTINIB
     Dosage: 2 DF, BID (2 TABLETS TWICE A DAY)
     Route: 065
  3. TASIGNA [Suspect]
     Active Substance: NILOTINIB
     Dosage: 2 DF, QD
     Route: 065
  4. TASIGNA [Suspect]
     Active Substance: NILOTINIB
     Dosage: 400 MG, QD
     Route: 065
  5. TASIGNA [Suspect]
     Active Substance: NILOTINIB
     Dosage: 1 DF, QD (1 TAB PER DAY)
     Route: 065
  6. TASIGNA [Suspect]
     Active Substance: NILOTINIB
     Indication: CHRONIC MYELOID LEUKAEMIA
     Dosage: 75 MG, QD
     Route: 048

REACTIONS (6)
  - Incorrect dose administered [Recovering/Resolving]
  - Asthenia [Not Recovered/Not Resolved]
  - Product prescribing error [Unknown]
  - Blood iron decreased [Unknown]
  - Fatigue [Not Recovered/Not Resolved]
  - Pancreatitis [Recovered/Resolved]
